FAERS Safety Report 17740731 (Version 2)
Quarter: 2020Q2

REPORT INFORMATION
  Report Type: Report from Study
  Country: CA (occurrence: CA)
  Receive Date: 20200504
  Receipt Date: 20200521
  Transmission Date: 20200714
  Serious: Yes (Other)
  Sender: FDA-Public Use
  Company Number: CA-JNJFOC-20200431303

PATIENT
  Age: 20 Year
  Sex: Male

DRUGS (2)
  1. STELARA [Suspect]
     Active Substance: USTEKINUMAB
     Indication: COLITIS ULCERATIVE
  2. STELARA [Suspect]
     Active Substance: USTEKINUMAB
     Indication: ANKYLOSING SPONDYLITIS
     Dosage: 390 MG GIVEN AS INTRAVENOUS ON 13-MAR-2020
     Route: 058
     Dates: start: 20200313, end: 20200324

REACTIONS (2)
  - Ankylosing spondylitis [Unknown]
  - Colectomy [Unknown]

NARRATIVE: CASE EVENT DATE: 202003
